FAERS Safety Report 11493560 (Version 1)
Quarter: 2015Q3

REPORT INFORMATION
  Report Type: Spontaneous
  Country: US (occurrence: US)
  Receive Date: 20150911
  Receipt Date: 20150911
  Transmission Date: 20151125
  Serious: Yes (Hospitalization)
  Sender: FDA-Public Use
  Company Number: US-ASTRAZENECA-2015SE86177

PATIENT
  Age: 751 Month
  Sex: Female
  Weight: 88 kg

DRUGS (20)
  1. LYRICA [Suspect]
     Active Substance: PREGABALIN
     Indication: BACK PAIN
     Route: 065
  2. AMLODIPINE [Concomitant]
     Active Substance: AMLODIPINE BESYLATE
     Dates: start: 201507
  3. LYRICA [Suspect]
     Active Substance: PREGABALIN
     Indication: HYPERLIPIDAEMIA
     Route: 065
  4. LYRICA [Suspect]
     Active Substance: PREGABALIN
     Indication: BACK PAIN
     Route: 065
     Dates: start: 201504
  5. DRUG FOR PAIN [Suspect]
     Active Substance: UNSPECIFIED INGREDIENT
     Route: 065
  6. MIRALAX [Concomitant]
     Active Substance: POLYETHYLENE GLYCOL 3350
     Indication: CONSTIPATION
  7. CALCIUM MAGNESIUM, ZINC [Concomitant]
     Dosage: DAILY
     Route: 048
  8. ROBAXIN [Concomitant]
     Active Substance: METHOCARBAMOL
  9. LYRICA [Suspect]
     Active Substance: PREGABALIN
     Indication: FIBROMYALGIA
     Route: 065
     Dates: start: 201504
  10. LYRICA [Suspect]
     Active Substance: PREGABALIN
     Indication: HYPERLIPIDAEMIA
     Route: 065
     Dates: start: 201504
  11. ACETEMOMINPHEN [Concomitant]
  12. DULEXETENE [Concomitant]
  13. LYRICA [Suspect]
     Active Substance: PREGABALIN
     Indication: HYPERTENSION
     Route: 065
  14. CRESTOR [Concomitant]
     Active Substance: ROSUVASTATIN CALCIUM
     Dates: start: 20141109
  15. IBUPROPHEN [Concomitant]
     Active Substance: IBUPROFEN
     Indication: PAIN
  16. NEXIUM [Suspect]
     Active Substance: ESOMEPRAZOLE MAGNESIUM
     Route: 048
  17. LYRICA [Suspect]
     Active Substance: PREGABALIN
     Indication: FIBROMYALGIA
     Route: 065
  18. CYMBALTA [Concomitant]
     Active Substance: DULOXETINE HYDROCHLORIDE
  19. COLACE [Concomitant]
     Active Substance: DOCUSATE SODIUM
     Route: 048
  20. LYRICA [Suspect]
     Active Substance: PREGABALIN
     Indication: HYPERTENSION
     Route: 065
     Dates: start: 201504

REACTIONS (12)
  - Eructation [Unknown]
  - Raynaud^s phenomenon [Unknown]
  - Drug hypersensitivity [Unknown]
  - Hyperphagia [Unknown]
  - Arthralgia [Unknown]
  - Weight decreased [Unknown]
  - Constipation [Unknown]
  - Toothache [Not Recovered/Not Resolved]
  - Pain [Unknown]
  - Flatulence [Unknown]
  - Product quality issue [Unknown]
  - Intentional product misuse [Unknown]

NARRATIVE: CASE EVENT DATE: 201504
